FAERS Safety Report 6251944-X (Version None)
Quarter: 2009Q2

REPORT INFORMATION
  Report Type: 
  Country: None (occurrence: None)
  Receive Date: 20090630
  Receipt Date: 20090625
  Transmission Date: 20091009
  Serious: Yes (Death, Other)
  Sender: FDA-Public Use
  Company Number: PHHY2009FR26194

PATIENT
  Sex: Male

DRUGS (6)
  1. EXELON [Suspect]
     Indication: NEURODEGENERATIVE DISORDER
     Dosage: 4.6 MG, QD
     Dates: start: 20090402, end: 20090501
  2. EXELON [Suspect]
     Dosage: 9.5 MG, QD
  3. SINTROM [Concomitant]
     Indication: PHLEBITIS
  4. PLAVIX [Concomitant]
     Dosage: UNK
     Dates: start: 20040101
  5. CHONDROSULF [Concomitant]
  6. HOMEOPATHIC PREPARATIONS [Suspect]

REACTIONS (9)
  - BRAIN OEDEMA [None]
  - CEREBRAL THROMBOSIS [None]
  - CEREBROVASCULAR ACCIDENT [None]
  - CHOLESTASIS [None]
  - CONSTIPATION [None]
  - DYSPHAGIA [None]
  - HEMIPARESIS [None]
  - HYPERGLYCAEMIA [None]
  - LUNG DISORDER [None]
